FAERS Safety Report 4339744-9 (Version None)
Quarter: 2004Q2

REPORT INFORMATION
  Report Type: 
  Country: None (occurrence: None)
  Receive Date: 20040416
  Receipt Date: 20040128
  Transmission Date: 20050107
  Serious: Yes (Hospitalization)
  Sender: FDA-Public Use
  Company Number: 200410219DE

PATIENT
  Age: 63 Year
  Sex: Female

DRUGS (6)
  1. DOCETAXEL [Suspect]
     Indication: BREAST CANCER
     Route: 042
     Dates: start: 20040121, end: 20040121
  2. DOXORUBICIN HCL [Suspect]
     Indication: BREAST CANCER
     Dates: start: 20040121, end: 20040121
  3. CYCLOPHOSPHAMIDE [Suspect]
     Indication: BREAST CANCER
     Dates: start: 20040121, end: 20040121
  4. NAVOBAN [Concomitant]
     Route: 042
     Dates: end: 20040121
  5. DEXAMETHASONE [Concomitant]
     Route: 042
     Dates: end: 20040121
  6. UROMITEXAN [Concomitant]
     Route: 048
     Dates: end: 20040121

REACTIONS (16)
  - ANGLE CLOSURE GLAUCOMA [None]
  - CATHETER RELATED COMPLICATION [None]
  - CEREBRAL INFARCTION [None]
  - COLITIS [None]
  - HAEMATOCRIT DECREASED [None]
  - HAEMOGLOBIN DECREASED [None]
  - HEADACHE [None]
  - HEPATIC CIRRHOSIS [None]
  - MEAN CELL HAEMOGLOBIN DECREASED [None]
  - MEAN CELL VOLUME ABNORMAL [None]
  - NAUSEA [None]
  - PLATELET COUNT DECREASED [None]
  - RED BLOOD CELL COUNT DECREASED [None]
  - SEPSIS [None]
  - SINUS TACHYCARDIA [None]
  - VOMITING [None]
